FAERS Safety Report 9948533 (Version 1)
Quarter: 2014Q1

REPORT INFORMATION
  Report Type: Spontaneous
  Country: US (occurrence: US)
  Receive Date: 20140303
  Receipt Date: 20140303
  Transmission Date: 20141002
  Serious: No
  Sender: FDA-Public Use
  Company Number: US-ABBVIE-13P-163-1057651-00

PATIENT
  Age: 40 Year
  Sex: Male
  Weight: 93.07 kg

DRUGS (6)
  1. HUMIRA [Suspect]
     Indication: BEHCET^S SYNDROME
     Route: 058
     Dates: start: 20130228, end: 20130228
  2. CYCLOSPORINE [Concomitant]
     Indication: IMMUNOSUPPRESSANT DRUG THERAPY
  3. LEVOTHYROXINE [Concomitant]
     Indication: THYROID DISORDER
  4. CALCIUM [Concomitant]
     Indication: MINERAL SUPPLEMENTATION
  5. LIPITOR [Concomitant]
     Indication: BLOOD CHOLESTEROL
  6. AMLODIPINE [Concomitant]
     Indication: BLOOD PRESSURE

REACTIONS (1)
  - Off label use [Not Recovered/Not Resolved]
